FAERS Safety Report 6087540-7 (Version None)
Quarter: 2009Q1

REPORT INFORMATION
  Report Type: 
  Country: None (occurrence: None)
  Receive Date: 20090223
  Receipt Date: 20090211
  Transmission Date: 20090719
  Serious: Yes (Other)
  Sender: FDA-Public Use
  Company Number: FR-PFIZER INC-2009162914

PATIENT

DRUGS (1)
  1. LATANOPROST [Suspect]
     Indication: GLAUCOMA

REACTIONS (2)
  - MALIGNANT MELANOMA [None]
  - MELANOCYTIC NAEVUS [None]
